FAERS Safety Report 10879262 (Version 1)
Quarter: 2015Q1

REPORT INFORMATION
  Report Type: Spontaneous
  Country: US (occurrence: None)
  Receive Date: 20150224
  Receipt Date: 20150224
  Transmission Date: 20150721
  Serious: Yes (Hospitalization)
  Sender: FDA-Public Use
  Company Number: None

PATIENT
  Age: 67 Year
  Sex: Male

DRUGS (1)
  1. ZICONOTIDE [Suspect]
     Active Substance: ZICONOTIDE
     Indication: PAIN
     Dosage: OTHER
     Route: 050
     Dates: start: 20141124, end: 20141128

REACTIONS (5)
  - Hallucination [None]
  - Multiple drug therapy [None]
  - Agitation [None]
  - Therapy change [None]
  - Mental status changes [None]

NARRATIVE: CASE EVENT DATE: 20141128
